FAERS Safety Report 6590538-3 (Version None)
Quarter: 2010Q1

REPORT INFORMATION
  Report Type: 
  Country: None (occurrence: None)
  Receive Date: 20100219
  Receipt Date: 20100208
  Transmission Date: 20100710
  Serious: Yes (Other)
  Sender: FDA-Public Use
  Company Number: US-PFIZER INC-2010006506

PATIENT
  Sex: Female

DRUGS (1)
  1. SUTENT [Suspect]
     Indication: METASTATIC RENAL CELL CARCINOMA
     Dosage: 50 MG, 1X/DAY 4-2 CYCLE
     Dates: start: 20091225

REACTIONS (3)
  - DYSPNOEA [None]
  - HYPERTENSION [None]
  - PERIORBITAL OEDEMA [None]
